FAERS Safety Report 4971721-7 (Version None)
Quarter: 2006Q2

REPORT INFORMATION
  Report Type: 
  Country: None (occurrence: None)
  Receive Date: 20060413
  Receipt Date: 20060404
  Transmission Date: 20061013
  Serious: Yes (Hospitalization)
  Sender: FDA-Public Use
  Company Number: PHBS2006IN05169

PATIENT
  Age: 21 Year
  Sex: Male

DRUGS (1)
  1. CARBAMAZEPINE [Suspect]
     Indication: CONVULSION
     Dosage: 600 MG/DAY
     Route: 065

REACTIONS (6)
  - DIZZINESS [None]
  - ELECTROCARDIOGRAM AMBULATORY ABNORMAL [None]
  - NODAL ARRHYTHMIA [None]
  - SICK SINUS SYNDROME [None]
  - SINUS ARRHYTHMIA [None]
  - SYNCOPE [None]
